FAERS Safety Report 6933549-8 (Version None)
Quarter: 2010Q3

REPORT INFORMATION
  Report Type: 
  Country: None (occurrence: None)
  Receive Date: 20100817
  Receipt Date: 20100803
  Transmission Date: 20110219
  Serious: Yes (Life-Threatening, Hospitalization)
  Sender: FDA-Public Use
  Company Number: 005673

PATIENT
  Age: 83 Year
  Sex: Female

DRUGS (5)
  1. PLETAL [Suspect]
     Indication: ARTERIOSCLEROSIS OBLITERANS
     Dosage: 100 MG, BID ORAL
     Route: 048
     Dates: start: 20080619, end: 20090214
  2. EPADEL (ETHYL ICOSAPENTATE) CAPSULE [Suspect]
     Indication: DYSLIPIDAEMIA
     Dosage: 900 MG, BID ORAL
     Route: 048
     Dates: start: 20051017
  3. LOSARTAN POTASSIUM [Concomitant]
  4. NOVOLIN N (INSULIN HUMAN(GENETICAL RECOMBINATION)) [Concomitant]
  5. GLUCOBAY [Concomitant]

REACTIONS (1)
  - MYOCARDIAL INFARCTION [None]
